FAERS Safety Report 5423813-6 (Version None)
Quarter: 2007Q3

REPORT INFORMATION
  Report Type: 
  Country: None (occurrence: None)
  Receive Date: 20070823
  Receipt Date: 20070814
  Transmission Date: 20080115
  Serious: Yes (Other)
  Sender: FDA-Public Use
  Company Number: US-ELI_LILLY_AND_COMPANY-US200706006122

PATIENT
  Age: 58 Year
  Sex: Female

DRUGS (12)
  1. BYETTA [Suspect]
     Dosage: 10 UG, 2/D
     Route: 058
     Dates: start: 20050101
  2. BYETTA [Suspect]
     Dosage: 5 UG, EACH EVENING
     Route: 058
  3. VYTORIN [Concomitant]
     Dosage: UNK, EACH EVENING
     Route: 065
  4. NOVOLOG [Concomitant]
     Dosage: 15 U, EACH MORNING
     Route: 065
  5. LANTUS [Concomitant]
     Dosage: 70 U, EACH EVENING
     Route: 065
  6. GLUCOPHAGE [Concomitant]
     Dosage: 850 MG, 3/D
     Route: 065
     Dates: start: 19990101
  7. AVANDIA [Concomitant]
     Dosage: 4 MG, DAILY (1/D)
     Route: 065
     Dates: start: 20040101
  8. CARDIZEM [Concomitant]
     Dosage: 480 UNK, DAILY (1/D)
     Route: 065
  9. IMDUR [Concomitant]
     Dosage: UNK, DAILY (1/D)
     Route: 065
  10. COZAAR [Concomitant]
     Dosage: UNK, UNKNOWN
     Route: 065
  11. TOPROL-XL [Concomitant]
     Dosage: UNK, DAILY (1/D)
     Route: 065
  12. ACTOS [Concomitant]
     Dosage: UNK, UNKNOWN
     Route: 065

REACTIONS (13)
  - ARTHRALGIA [None]
  - ARTHROPATHY [None]
  - COLD SWEAT [None]
  - DIZZINESS [None]
  - DRY MOUTH [None]
  - EPISTAXIS [None]
  - FATIGUE [None]
  - HAEMOGLOBIN DECREASED [None]
  - OEDEMA PERIPHERAL [None]
  - SWOLLEN TONGUE [None]
  - TINNITUS [None]
  - TREMOR [None]
  - WEIGHT DECREASED [None]
